FAERS Safety Report 4309336-6 (Version None)
Quarter: 2004Q1

REPORT INFORMATION
  Report Type: 
  Country: None (occurrence: None)
  Receive Date: 20040302
  Receipt Date: 20040213
  Transmission Date: 20041129
  Serious: Yes (Other)
  Sender: FDA-Public Use
  Company Number: DE-GLAXOSMITHKLINE-D0043181A

PATIENT
  Age: 48 Year
  Sex: Female
  Weight: 72 kg

DRUGS (2)
  1. IMIGRAN [Suspect]
     Indication: MIGRAINE
     Route: 048
     Dates: start: 19970307
  2. BERLTHYROX 100 [Concomitant]
     Dosage: 1TAB PER DAY
     Route: 048

REACTIONS (9)
  - ARRHYTHMIA [None]
  - CARDIOVASCULAR DISORDER [None]
  - HEMIPLEGIA [None]
  - HYPOAESTHESIA [None]
  - MIGRAINE [None]
  - OCULAR DISCOMFORT [None]
  - PAIN [None]
  - PARALYSIS [None]
  - VISUAL DISTURBANCE [None]
